FAERS Safety Report 8601939-3 (Version None)
Quarter: 2012Q3

REPORT INFORMATION
  Report Type: 
  Country: None (occurrence: None)
  Receive Date: 20120817
  Receipt Date: 20120625
  Transmission Date: 20120928
  Serious: No
  Sender: FDA-Public Use
  Company Number: US-BRISTOL-MYERS SQUIBB COMPANY-16660334

PATIENT
  Age: 47 Year
  Sex: Female

DRUGS (6)
  1. ATIVAN [Concomitant]
  2. SUMATRIPTAN [Concomitant]
     Indication: MIGRAINE
  3. ZYRTEC [Concomitant]
  4. SANCTURA [Concomitant]
  5. SPRYCEL [Suspect]
     Indication: CHRONIC MYELOID LEUKAEMIA
     Dosage: DURATION: FOR 6 WEEKS
     Route: 048
     Dates: start: 20120426
  6. TYLENOL [Concomitant]
     Indication: MIGRAINE

REACTIONS (3)
  - HEADACHE [None]
  - NAUSEA [None]
  - VOMITING [None]
